FAERS Safety Report 6219065-X (Version None)
Quarter: 2009Q2

REPORT INFORMATION
  Report Type: 
  Country: None (occurrence: None)
  Receive Date: 20090608
  Receipt Date: 20090529
  Transmission Date: 20091009
  Serious: Yes (Other)
  Sender: FDA-Public Use
  Company Number: CA-JNJCH-2009014967

PATIENT
  Sex: Female

DRUGS (1)
  1. LISTERINE WHITENING PRE-BRUSH RINSE [Suspect]
     Indication: DENTAL DISORDER PROPHYLAXIS
     Dosage: TEXT:UNSPECIFIED ONCE
     Route: 048
     Dates: start: 20090529, end: 20090529

REACTIONS (4)
  - APPLICATION SITE BURN [None]
  - LACRIMATION INCREASED [None]
  - OROPHARYNGEAL BLISTERING [None]
  - PRODUCT QUALITY ISSUE [None]
